FAERS Safety Report 7629545-8 (Version None)
Quarter: 2011Q3

REPORT INFORMATION
  Report Type: 
  Country: None (occurrence: None)
  Receive Date: 20110722
  Receipt Date: 20110425
  Transmission Date: 20111222
  Serious: No
  Sender: FDA-Public Use
  Company Number: US-BAYER-201024093NA

PATIENT
  Age: 43 Year
  Sex: Female

DRUGS (9)
  1. BETASERON [Suspect]
     Indication: RELAPSING-REMITTING MULTIPLE SCLEROSIS
     Route: 058
     Dates: start: 20100322
  2. PRINIVIL [Concomitant]
  3. IBUPROFEN [Concomitant]
  4. ACETAMINOPHEN [Concomitant]
  5. AVONEX [Concomitant]
     Dosage: UNK
  6. ZYRTEC [Suspect]
  7. NAPROXEN (ALEVE) [Concomitant]
  8. MAXZIDE [Concomitant]
  9. IV STEROIDS [Suspect]
     Dosage: UNK
     Dates: start: 20100201

REACTIONS (22)
  - FATIGUE [None]
  - RASH ERYTHEMATOUS [None]
  - JOINT SWELLING [None]
  - MYALGIA [None]
  - MUSCLE TIGHTNESS [None]
  - HYPOAESTHESIA [None]
  - FEELING ABNORMAL [None]
  - APPLICATION SITE ERYTHEMA [None]
  - HYPERSENSITIVITY [None]
  - INJECTION SITE DISCOLOURATION [None]
  - HYPERTENSION [None]
  - INJECTION SITE HAEMATOMA [None]
  - RHINORRHOEA [None]
  - MULTIPLE ALLERGIES [None]
  - PAIN [None]
  - DYSGEUSIA [None]
  - SNEEZING [None]
  - INJECTION SITE ERYTHEMA [None]
  - FEELING HOT [None]
  - SWOLLEN TONGUE [None]
  - GINGIVAL SWELLING [None]
  - ARTHRALGIA [None]
